FAERS Safety Report 18011420 (Version 1)
Quarter: 2020Q3

REPORT INFORMATION
  Report Type: Spontaneous
  Country: US (occurrence: US)
  Receive Date: 20200712
  Receipt Date: 20200712
  Transmission Date: 20201103
  Serious: No
  Sender: FDA-Public Use
  Company Number: US-AMGEN-USASP2020109994

PATIENT
  Age: 55 Year
  Sex: Male

DRUGS (11)
  1. TAMSULOSIN [Concomitant]
     Active Substance: TAMSULOSIN
     Dosage: 0.4 MILLIGRAM
  2. OTEZLA [Suspect]
     Active Substance: APREMILAST
     Indication: PSORIATIC ARTHROPATHY
     Dosage: 30 MILLIGRAM, BID
     Route: 048
     Dates: start: 20200605
  3. GABAPENTIN. [Concomitant]
     Active Substance: GABAPENTIN
     Dosage: 400 MILLIGRAM
  4. TESTOSTERONE. [Concomitant]
     Active Substance: TESTOSTERONE
  5. METHOTREXATE. [Concomitant]
     Active Substance: METHOTREXATE
     Dosage: 2.5 MILLIGRAM
  6. MIRTAZAPINE. [Concomitant]
     Active Substance: MIRTAZAPINE
     Dosage: 30 MILLIGRAM
  7. PAROXETINE. [Concomitant]
     Active Substance: PAROXETINE
     Dosage: 37.5 MILLIGRAM
  8. SIMVASTATIN. [Concomitant]
     Active Substance: SIMVASTATIN
     Dosage: 80 MILLIGRAM
  9. FOLIC ACID. [Concomitant]
     Active Substance: FOLIC ACID
     Dosage: 1 MILLIGRAM
  10. LORAZEPAM. [Concomitant]
     Active Substance: LORAZEPAM
     Dosage: 1 MILLIGRAM
  11. OXYCODONE/APAP [OXYCODONE;PARACETAMOL] [Concomitant]
     Dosage: UNK 10/325 MILLIGRAM

REACTIONS (5)
  - Decreased appetite [Not Recovered/Not Resolved]
  - Faeces hard [Not Recovered/Not Resolved]
  - Defaecation urgency [Not Recovered/Not Resolved]
  - Weight decreased [Not Recovered/Not Resolved]
  - Abdominal pain upper [Not Recovered/Not Resolved]

NARRATIVE: CASE EVENT DATE: 20200619
